FAERS Safety Report 6306060-5 (Version None)
Quarter: 2009Q3

REPORT INFORMATION
  Report Type: 
  Country: None (occurrence: None)
  Receive Date: 20090812
  Receipt Date: 20090803
  Transmission Date: 20100115
  Serious: Yes (Hospitalization)
  Sender: FDA-Public Use
  Company Number: SE-JNJFOC-20090800610

PATIENT
  Age: 19 Year
  Sex: Female

DRUGS (1)
  1. CONCERTA [Suspect]
     Indication: ELEVATED MOOD
     Dosage: 6 DOSES AT ONE TIME AND COUPLE OF HOURS LATER ANOTHER 6 DOSED (TOTAL DOSAGE OF 432 MG)
     Route: 048

REACTIONS (8)
  - FEELING OF RELAXATION [None]
  - HYPOAESTHESIA [None]
  - INSOMNIA [None]
  - MUSCLE TWITCHING [None]
  - OFF LABEL USE [None]
  - OVERDOSE [None]
  - TREMOR [None]
  - VISION BLURRED [None]
